FAERS Safety Report 6187360-9 (Version None)
Quarter: 2009Q2

REPORT INFORMATION
  Report Type: 
  Country: None (occurrence: None)
  Receive Date: 20090512
  Receipt Date: 20090504
  Transmission Date: 20091009
  Serious: Yes (Hospitalization)
  Sender: FDA-Public Use
  Company Number: A0778443A

PATIENT
  Age: 46 Year
  Sex: Female

DRUGS (4)
  1. LAMICTAL [Suspect]
     Indication: BIPOLAR DISORDER
     Dosage: 100MG PER DAY
     Route: 048
     Dates: start: 20090101
  2. CITALOPRAM HYDROBROMIDE [Concomitant]
  3. CLONAZEPAM [Concomitant]
  4. INVEGA [Concomitant]

REACTIONS (2)
  - PSYCHIATRIC SYMPTOM [None]
  - RASH [None]
